FAERS Safety Report 9644418 (Version 1)
Quarter: 2013Q4

REPORT INFORMATION
  Report Type: Spontaneous
  Country: FR (occurrence: FR)
  Receive Date: 20131025
  Receipt Date: 20131025
  Transmission Date: 20140711
  Serious: Yes (Other)
  Sender: FDA-Public Use
  Company Number: FR-009507513-1310FRA009731

PATIENT
  Age: 72 Year
  Sex: Male

DRUGS (7)
  1. VELMETIA [Suspect]
     Indication: TYPE 2 DIABETES MELLITUS
     Dosage: 1 DF, QD
     Route: 048
     Dates: start: 201307, end: 20130920
  2. METFORMIN [Suspect]
     Indication: TYPE 2 DIABETES MELLITUS
     Dosage: UNK
     Route: 048
     Dates: start: 201305, end: 201307
  3. KARDEGIC [Concomitant]
     Dosage: UNK
  4. CELIPROLOL HYDROCHLORIDE [Concomitant]
     Dosage: UNK
  5. ALLOPURINOL [Concomitant]
  6. NIFEDIPINE [Concomitant]
     Dosage: UNK
  7. GLIMEPIRIDE [Concomitant]

REACTIONS (2)
  - Pruritus [Recovered/Resolved]
  - Rash [Recovered/Resolved]
